FAERS Safety Report 16243961 (Version 2)
Quarter: 2019Q2

REPORT INFORMATION
  Report Type: Spontaneous
  Country: US (occurrence: US)
  Receive Date: 20190426
  Receipt Date: 20190625
  Transmission Date: 20190711
  Serious: Yes (Hospitalization, Other)
  Sender: FDA-Public Use
  Company Number: US-PFIZER INC-2019168118

PATIENT
  Age: 65 Year
  Sex: Female
  Weight: 61 kg

DRUGS (1)
  1. PREMARIN [Suspect]
     Active Substance: ESTROGENS, CONJUGATED
     Indication: VULVOVAGINAL DRYNESS
     Dosage: 0.625 MG, 1/4 APPLICATION FOR 14 DAYS 0.625 MG TOOK USED ONCE ONLY 0.625
     Dates: start: 20190407, end: 20190408

REACTIONS (6)
  - Abdominal pain lower [Recovered/Resolved]
  - Bladder pain [Recovered/Resolved]
  - Blood urine present [Recovered/Resolved]
  - Urinary tract infection [Recovered/Resolved]
  - Dysuria [Recovered/Resolved]
  - Pollakiuria [Recovered/Resolved]

NARRATIVE: CASE EVENT DATE: 20190408
